FAERS Safety Report 6229368-0 (Version None)
Quarter: 2009Q2

REPORT INFORMATION
  Report Type: 
  Country: None (occurrence: None)
  Receive Date: 20090615
  Receipt Date: 20090604
  Transmission Date: 20091009
  Serious: Yes (Other)
  Sender: FDA-Public Use
  Company Number: JP-ASTRAZENECA-2009AC01169

PATIENT
  Age: 25121 Day
  Sex: Female

DRUGS (11)
  1. MEROPEN [Suspect]
     Route: 042
     Dates: start: 20090401, end: 20090407
  2. ALEVIATIN [Suspect]
     Indication: CEREBRAL HAEMORRHAGE
     Route: 042
     Dates: start: 20090309, end: 20090309
  3. ALEVIATIN [Suspect]
     Route: 048
     Dates: start: 20090310, end: 20090408
  4. VANCOMYCIN HCL [Suspect]
     Dates: start: 20090325, end: 20090331
  5. CARBENIN [Suspect]
     Dates: start: 20090314, end: 20090323
  6. GASTER D [Suspect]
     Route: 048
     Dates: start: 20090310, end: 20090408
  7. OLMETEC [Concomitant]
     Route: 048
     Dates: start: 20090310, end: 20090408
  8. AMLODIPINE [Concomitant]
     Route: 048
     Dates: start: 20090312, end: 20090408
  9. ARICEPT [Concomitant]
     Route: 048
     Dates: start: 20090324, end: 20090331
  10. ARICEPT [Concomitant]
     Route: 048
     Dates: start: 20090401, end: 20090408
  11. SERMION [Concomitant]
     Route: 048
     Dates: start: 20090324, end: 20090408

REACTIONS (1)
  - DRUG ERUPTION [None]
